FAERS Safety Report 12517070 (Version 5)
Quarter: 2020Q2

REPORT INFORMATION
  Report Type: Spontaneous
  Country: US (occurrence: US)
  Receive Date: 20160630
  Receipt Date: 20200626
  Transmission Date: 20200713
  Serious: No
  Sender: FDA-Public Use
  Company Number: US-PFIZER INC-2016298294

PATIENT
  Age: 72 Year
  Sex: Female
  Weight: 86.1 kg

DRUGS (37)
  1. ACETAMINOPHEN. [Concomitant]
     Active Substance: ACETAMINOPHEN
     Indication: ARTHRITIS
     Dosage: 650 MG, 3X/DAY (MORNING, AFTERNOON, EVENING)
     Route: 048
  2. CARTIA [Concomitant]
     Dosage: 120 MG, DAILY
     Route: 048
  3. ROPINIROLE HCL [Concomitant]
     Active Substance: ROPINIROLE HYDROCHLORIDE
     Dosage: 2 MG, 1X/DAY
     Route: 048
  4. NEXIUM 24HR [Concomitant]
     Active Substance: ESOMEPRAZOLE MAGNESIUM
     Indication: GASTROOESOPHAGEAL REFLUX DISEASE
     Dosage: 20 MG, DAILY
     Route: 048
  5. PROBIOTIC [Concomitant]
     Active Substance: PROBIOTICS NOS
     Dosage: 1 DF, DAILY
     Route: 048
  6. FEXOFENADINE [Concomitant]
     Active Substance: FEXOFENADINE HYDROCHLORIDE
     Dosage: 180 MG, DAILY
     Route: 048
  7. TRETINOIN. [Concomitant]
     Active Substance: TRETINOIN
     Dosage: UNK, 1X/DAY
  8. INDAPAMIDE. [Concomitant]
     Active Substance: INDAPAMIDE
     Indication: HYPERTENSION
     Dosage: 1.25 MG, DAILY
     Route: 048
  9. WARFARIN SODIUM. [Concomitant]
     Active Substance: WARFARIN SODIUM
     Dosage: 6 MG, ONE HALF TABLETS AS DIRECTED
  10. SERTRALINE HCL [Concomitant]
     Active Substance: SERTRALINE HYDROCHLORIDE
     Dosage: 50 MG, DAILY
     Route: 048
  11. REQUIP [Concomitant]
     Active Substance: ROPINIROLE HYDROCHLORIDE
     Dosage: 1 MG, AS NEEDED(AT NIGHT )(MAY INCREASE TO 2 TABLETS)
  12. TIKOSYN [Concomitant]
     Active Substance: DOFETILIDE
     Dosage: 500 UG, 2X/DAY(EVERY 12HRS (10-10 SCHEDULE)
     Route: 048
  13. METOPROLOL TARTRATE. [Concomitant]
     Active Substance: METOPROLOL TARTRATE
     Dosage: 25 MG, 2X/DAY (EVERY 12HRS (9AM + 9PM))
     Route: 048
  14. POLYCARBOPHIL CA [Concomitant]
     Active Substance: CALCIUM POLYCARBOPHIL
     Dosage: UNK, AS NEEDED
  15. LYRICA [Suspect]
     Active Substance: PREGABALIN
     Indication: NEUROPATHY PERIPHERAL
     Dosage: 75 MG, 2X/DAY (10 TO 10 SCHEDULE)
     Route: 048
  16. CALTRATE 600+D [Concomitant]
     Dosage: 1 DF, DAILY
  17. ALPRAZOLAM. [Concomitant]
     Active Substance: ALPRAZOLAM
     Indication: NEUROPATHY PERIPHERAL
     Dosage: 0.5 MG, 2X/DAY
     Route: 048
  18. ALPRAZOLAM. [Concomitant]
     Active Substance: ALPRAZOLAM
     Dosage: UNK (0.5 TABLET, 1/2 TAB IN THE AM + 1 TAB AT BEDTIME)
  19. HYOSCYAMINE SULFATE. [Concomitant]
     Active Substance: HYOSCYAMINE SULFATE
     Dosage: 0.125 MG, AS NEEDED (EVERY 4 HOURS)
     Route: 060
  20. ACETAMINOPHEN AND CODEINE [Concomitant]
     Active Substance: ACETAMINOPHEN\CODEINE PHOSPHATE
     Indication: PAIN
     Dosage: UNK (CODEINE PHOSPHATE-300 MG, PARACETAMOL-30 MG) ONE TABLET BY MOUTH ONCE OR TWICE DAILY
     Route: 048
  21. CALTRATE WITH VITAMIN D [Concomitant]
     Active Substance: CALCIUM CARBONATE\CHOLECALCIFEROL
     Dosage: 600 MG, DAILY
     Route: 048
  22. POTASSIUM CHLORIDE. [Concomitant]
     Active Substance: POTASSIUM CHLORIDE
     Dosage: 10 MEQ, UNK
  23. LYRICA [Suspect]
     Active Substance: PREGABALIN
     Indication: FIBROMYALGIA
     Dosage: 75 MG, 3X/DAY
     Route: 048
  24. POTASSIUM CHLORIDE. [Concomitant]
     Active Substance: POTASSIUM CHLORIDE
     Indication: BLOOD POTASSIUM ABNORMAL
     Dosage: 20 MEQ, DAILY
     Route: 048
  25. SOTALOL HCL [Concomitant]
     Active Substance: SOTALOL
     Dosage: 120 MG, 2X/DAY
     Route: 048
  26. TYLENOL WITH CODEINE [Concomitant]
     Active Substance: ACETAMINOPHEN\CODEINE PHOSPHATE
     Dosage: UNK, AS NEEDED (300/30 EVERY 6 HRS)
  27. KLOR-CON M10 [Concomitant]
     Active Substance: POTASSIUM CHLORIDE
     Dosage: 3 DF, DAILY
     Route: 048
  28. PROAIR HFA [Concomitant]
     Active Substance: ALBUTEROL SULFATE
     Indication: WHEEZING
  29. FIBER [Concomitant]
     Active Substance: PSYLLIUM HUSK
     Dosage: UNK, AS NEEDED
     Route: 048
  30. DILTIAZEM. [Concomitant]
     Active Substance: DILTIAZEM
     Dosage: 120 MG, DAILY
     Route: 048
  31. LASIX [Concomitant]
     Active Substance: FUROSEMIDE
     Dosage: 1 DF, DAILY (IN THE AM)
     Route: 048
  32. PROAIR HFA [Concomitant]
     Active Substance: ALBUTEROL SULFATE
     Indication: DYSPNOEA
     Dosage: UNK, AS NEEDED(2 PUFFS BY MOUTH EVERY 4 HRS )
     Route: 055
  33. VITAMIN D3 [Concomitant]
     Active Substance: CHOLECALCIFEROL
     Dosage: 4000 IU, DAILY
     Route: 048
  34. ELIQUIS [Concomitant]
     Active Substance: APIXABAN
     Dosage: 5 MG, 2X/DAY (1 TABLET EVERY 12 HOURS)(CURRENTLY ON 10AM 10PM SCHEDULE)
  35. MAGNESIUM [Concomitant]
     Active Substance: MAGNESIUM
     Dosage: 500 MG, 1X/DAY (AT BEDTIME)
     Route: 048
  36. FEXOFENADINE HCL [Concomitant]
     Active Substance: FEXOFENADINE HYDROCHLORIDE
     Dosage: 180 MG, DAILY
  37. SERTRALINE [Concomitant]
     Active Substance: SERTRALINE HYDROCHLORIDE
     Dosage: 50 MG, DAILY
     Route: 048

REACTIONS (1)
  - Therapeutic response unexpected [Unknown]
